FAERS Safety Report 5403176-2 (Version None)
Quarter: 2007Q3

REPORT INFORMATION
  Report Type: 
  Country: None (occurrence: None)
  Receive Date: 20070801
  Receipt Date: 20070727
  Transmission Date: 20080115
  Serious: Yes (Other)
  Sender: FDA-Public Use
  Company Number: US-PFIZER INC-2006125915

PATIENT
  Sex: Male

DRUGS (4)
  1. VIAGRA [Suspect]
     Indication: ERECTILE DYSFUNCTION
     Dates: start: 19980901, end: 20011201
  2. YOHIMBINE [Concomitant]
     Indication: ERECTILE DYSFUNCTION
  3. VALTREX [Concomitant]
     Indication: HERPES VIRUS INFECTION
  4. HYTRIN [Concomitant]
     Indication: HYPERTENSION

REACTIONS (1)
  - OPTIC NEUROPATHY [None]
